FAERS Safety Report 8373363-2 (Version None)
Quarter: 2012Q2

REPORT INFORMATION
  Report Type: 
  Country: None (occurrence: None)
  Receive Date: 20120521
  Receipt Date: 20120507
  Transmission Date: 20120825
  Serious: Yes (Other)
  Sender: FDA-Public Use
  Company Number: US-ELI_LILLY_AND_COMPANY-US201205003125

PATIENT
  Age: 42 Year
  Sex: Female

DRUGS (5)
  1. CYMBALTA [Suspect]
     Dosage: 60 MG, QD
  2. CYMBALTA [Suspect]
     Dosage: 30 MG, QD
  3. CYMBALTA [Suspect]
     Dosage: 30 MG, QD
  4. CYMBALTA [Suspect]
     Indication: ARTHRALGIA
     Dosage: 20 MG, QD
     Dates: start: 20120201
  5. MYSOLINE [Concomitant]
     Dosage: UNK, UNKNOWN

REACTIONS (27)
  - CONDITION AGGRAVATED [None]
  - FEELING ABNORMAL [None]
  - TREMOR [None]
  - PALPITATIONS [None]
  - SOMNOLENCE [None]
  - DYSPHAGIA [None]
  - DIARRHOEA [None]
  - VERTIGO [None]
  - NIGHTMARE [None]
  - CHEST DISCOMFORT [None]
  - DERMATITIS BULLOUS [None]
  - ULCER [None]
  - PANIC REACTION [None]
  - HYPERHIDROSIS [None]
  - CRYING [None]
  - MUSCLE SPASMS [None]
  - ABDOMINAL PAIN UPPER [None]
  - ASTHENIA [None]
  - DRUG WITHDRAWAL SYNDROME [None]
  - VOMITING [None]
  - NAUSEA [None]
  - FATIGUE [None]
  - ORAL HERPES [None]
  - URTICARIA [None]
  - DYSPNOEA [None]
  - FEAR [None]
  - ANGIOEDEMA [None]
